FAERS Safety Report 8903925 (Version 2)
Quarter: 2014Q1

REPORT INFORMATION
  Report Type: Spontaneous
  Country: US (occurrence: US)
  Receive Date: 20121112
  Receipt Date: 20140123
  Transmission Date: 20141002
  Serious: Yes (Hospitalization, Disabling, Other)
  Sender: FDA-Public Use
  Company Number: US-009507513-1211USA003751

PATIENT
  Sex: Female

DRUGS (7)
  1. FOSAMAX [Suspect]
     Indication: OSTEOPENIA
     Dosage: 35 MG, UNK
     Route: 048
     Dates: start: 200306, end: 200412
  2. FOSAMAX [Suspect]
     Dosage: 70 MG, UNK
     Route: 048
     Dates: start: 200306, end: 200412
  3. CALCIUM (UNSPECIFIED) [Concomitant]
     Dosage: 1000 IU, QD
     Route: 048
     Dates: start: 2002
  4. VITAMIN D (UNSPECIFIED) [Concomitant]
     Dosage: 1000 IU, QD
     Route: 048
     Dates: start: 2002
  5. VITAMINS (UNSPECIFIED) [Concomitant]
     Dosage: 1000 IU, QD
     Route: 048
     Dates: start: 2002
  6. HORMONES (UNSPECIFIED) [Concomitant]
     Dosage: UNK
     Dates: start: 1999, end: 2009
  7. ALLEGRA [Concomitant]
     Indication: HYPERSENSITIVITY

REACTIONS (12)
  - Femur fracture [Not Recovered/Not Resolved]
  - Femur fracture [Not Recovered/Not Resolved]
  - Intramedullary rod insertion [Unknown]
  - Intramedullary rod insertion [Unknown]
  - Depression [Unknown]
  - Anxiety [Unknown]
  - Adverse event [Unknown]
  - Hypertension [Unknown]
  - Blood cholesterol increased [Unknown]
  - Fungal infection [Unknown]
  - Fungal infection [Unknown]
  - Impaired healing [Unknown]
